FAERS Safety Report 10762290 (Version 1)
Quarter: 2015Q1

REPORT INFORMATION
  Report Type: Spontaneous
  Country: US (occurrence: US)
  Receive Date: 20150204
  Receipt Date: 20150204
  Transmission Date: 20150721
  Serious: Yes (Death)
  Sender: FDA-Public Use
  Company Number: US-PERRIGO-15US001045

PATIENT
  Age: 58 Year
  Sex: Male

DRUGS (8)
  1. AMLODIPINE [Suspect]
     Active Substance: AMLODIPINE BESYLATE
     Indication: COMPLETED SUICIDE
     Dosage: UNK, UNK
     Route: 048
  2. FLUPHENAZINE [Suspect]
     Active Substance: FLUPHENAZINE
     Indication: COMPLETED SUICIDE
     Route: 065
  3. TRAMADOL [Suspect]
     Active Substance: TRAMADOL
     Indication: COMPLETED SUICIDE
     Route: 048
  4. CITALOPRAM [Suspect]
     Active Substance: CITALOPRAM HYDROBROMIDE
     Indication: COMPLETED SUICIDE
     Route: 048
  5. THEOPHYLLINE [Suspect]
     Active Substance: THEOPHYLLINE ANHYDROUS
     Indication: COMPLETED SUICIDE
     Route: 065
  6. MORPHINE SULFATE 20 MG/ML 0L8 [Suspect]
     Active Substance: MORPHINE SULFATE
     Indication: COMPLETED SUICIDE
     Dosage: UNK, UNK
     Route: 065
  7. HYDROMORPHONE [Suspect]
     Active Substance: HYDROMORPHONE
     Indication: COMPLETED SUICIDE
     Route: 065
  8. GUAIFENESIN + PSEUDOEPHEDRINE HCL ER [Suspect]
     Active Substance: GUAIFENESIN\PSEUDOEPHEDRINE HYDROCHLORIDE
     Indication: COMPLETED SUICIDE
     Route: 065

REACTIONS (2)
  - Death [Fatal]
  - Completed suicide [None]
